FAERS Safety Report 7705437-0 (Version None)
Quarter: 2011Q3

REPORT INFORMATION
  Report Type: 
  Country: None (occurrence: None)
  Receive Date: 20110823
  Receipt Date: 20110823
  Transmission Date: 20111222
  Serious: No
  Sender: FDA-Public Use
  Company Number: None

PATIENT
  Sex: Female
  Weight: 79.3 kg

DRUGS (2)
  1. CARBOPLATIN [Suspect]
     Dosage: 730 MG
     Dates: end: 20110816
  2. TAXOL [Suspect]
     Dosage: 330 MG
     Dates: end: 20110816

REACTIONS (2)
  - TOXICITY TO VARIOUS AGENTS [None]
  - NEUTROPENIA [None]
